FAERS Safety Report 4299088-0 (Version None)
Quarter: 2004Q1

REPORT INFORMATION
  Report Type: 
  Country: None (occurrence: None)
  Receive Date: 20040219
  Receipt Date: 20040209
  Transmission Date: 20041129
  Serious: Yes (Other)
  Sender: FDA-Public Use
  Company Number: FR-BRISTOL-MYERS SQUIBB COMPANY-12508503

PATIENT
  Age: 4 Year
  Sex: Male

DRUGS (2)
  1. HOLOXAN [Suspect]
     Indication: BONE SARCOMA
     Dosage: 3 GRAM/M2
     Route: 042
  2. VP-16 [Concomitant]
     Indication: BONE SARCOMA

REACTIONS (1)
  - SINUS TACHYCARDIA [None]
